FAERS Safety Report 5833602-6 (Version None)
Quarter: 2008Q3

REPORT INFORMATION
  Report Type: 
  Country: None (occurrence: None)
  Receive Date: 20080805
  Receipt Date: 20080729
  Transmission Date: 20090109
  Serious: Yes (Death, Other)
  Sender: FDA-Public Use
  Company Number: US-AVENTIS-200814739US

PATIENT
  Sex: Female
  Weight: 71 kg

DRUGS (4)
  1. LOVENOX [Suspect]
     Route: 058
     Dates: start: 20080105, end: 20080106
  2. LOVENOX [Suspect]
     Route: 058
     Dates: start: 20080108
  3. HEPARIN [Suspect]
     Dosage: DOSE: 20,000
     Dates: start: 20080104, end: 20080104
  4. COUMADIN [Suspect]
     Dosage: DOSE: UNK
     Dates: start: 20080106

REACTIONS (6)
  - CEREBRAL HAEMORRHAGE [None]
  - COUGH [None]
  - DEATH [None]
  - HEPARIN-INDUCED THROMBOCYTOPENIA [None]
  - LOSS OF CONSCIOUSNESS [None]
  - PLATELET COUNT DECREASED [None]
